FAERS Safety Report 6173211-5 (Version None)
Quarter: 2009Q2

REPORT INFORMATION
  Report Type: 
  Country: None (occurrence: None)
  Receive Date: 20090430
  Receipt Date: 20090430
  Transmission Date: 20091009
  Serious: Yes (Other)
  Sender: FDA-Public Use
  Company Number: US-PFIZER INC-2009170158

PATIENT

DRUGS (2)
  1. NEURONTIN [Suspect]
     Indication: NEURALGIA
  2. LYRICA [Suspect]
     Indication: FIBROMYALGIA
     Dosage: 75 MG, 1X/DAY

REACTIONS (5)
  - BACTERIAL INFECTION [None]
  - FIBROMYALGIA [None]
  - HEADACHE [None]
  - MALAISE [None]
  - MYALGIA [None]
